FAERS Safety Report 8611705-0 (Version None)
Quarter: 2012Q3

REPORT INFORMATION
  Report Type: 
  Country: None (occurrence: None)
  Receive Date: 20120822
  Receipt Date: 20120816
  Transmission Date: 20120928
  Serious: Yes (Other)
  Sender: FDA-Public Use
  Company Number: CN-ROCHE-1104128

PATIENT
  Sex: Male

DRUGS (3)
  1. MYCOPHENOLATE MOFETIL (CELLCEPT) [Suspect]
     Indication: IGA NEPHROPATHY
     Route: 048
     Dates: start: 20090116, end: 20090125
  2. PREDNISONE TAB [Concomitant]
     Indication: IGA NEPHROPATHY
     Route: 048
     Dates: start: 20090105, end: 20090130
  3. MYCOPHENOLATE MOFETIL (CELLCEPT) [Suspect]
     Route: 048
     Dates: start: 20090125

REACTIONS (1)
  - PROTEINURIA [None]
